FAERS Safety Report 9262028 (Version 1)
Quarter: 2013Q2

REPORT INFORMATION
  Report Type: Spontaneous
  Country: CA (occurrence: CA)
  Receive Date: 20130429
  Receipt Date: 20130429
  Transmission Date: 20140414
  Serious: Yes (Other)
  Sender: FDA-Public Use
  Company Number: CA-009507513-1304CAN017062

PATIENT
  Age: 74 Year
  Sex: Female

DRUGS (6)
  1. MIRTAZAPINE [Suspect]
     Indication: DEPRESSION
     Dosage: 30 MG, QD
  2. FUROSEMIDE [Concomitant]
     Indication: OEDEMA PERIPHERAL
     Dosage: 40 MG, QD
  3. DOCUSATE SODIUM [Concomitant]
     Dosage: 200 MG, QD
  4. LACTULOSE [Concomitant]
     Dosage: 30 ML, QD
  5. BISACODYL [Concomitant]
     Dosage: 10 MG, PRN
  6. SODIUM PHOSPHATE, DIBASIC [Concomitant]
     Indication: CONSTIPATION
     Dosage: 130 ML, PRN

REACTIONS (1)
  - Colonic pseudo-obstruction [Unknown]
